FAERS Safety Report 25936169 (Version 1)
Quarter: 2025Q4

REPORT INFORMATION
  Report Type: Spontaneous
  Country: US (occurrence: US)
  Receive Date: 20251017
  Receipt Date: 20251017
  Transmission Date: 20260117
  Serious: Yes (Hospitalization, Other)
  Sender: BAYER HEALTHCARE LLC
  Company Number: US-BAYER-2025A136520

PATIENT
  Age: 80 Year
  Sex: Male

DRUGS (3)
  1. ASPIRIN [Suspect]
     Active Substance: ASPIRIN
     Indication: Anticoagulant therapy
     Dosage: 81 MG, QD
  2. ASPIRIN [Suspect]
     Active Substance: ASPIRIN
     Indication: Thrombosis prophylaxis
  3. ELIQUIS [Concomitant]
     Active Substance: APIXABAN
     Indication: Thrombosis prophylaxis
     Dosage: 5 MG, BID

REACTIONS (1)
  - Pericardial haemorrhage [Recovered/Resolved]
